FAERS Safety Report 5488944-3 (Version None)
Quarter: 2007Q4

REPORT INFORMATION
  Report Type: 
  Country: None (occurrence: None)
  Receive Date: 20071016
  Receipt Date: 20071003
  Transmission Date: 20080405
  Serious: Yes (Hospitalization)
  Sender: FDA-Public Use
  Company Number: 2007-03150

PATIENT
  Age: 55 Year
  Sex: Female
  Weight: 69.6 kg

DRUGS (11)
  1. VELCADE [Suspect]
     Indication: GASTRIC ADENOMA
     Dosage: 1.20 MG, INTRAVENOUS
     Route: 042
     Dates: start: 20070606
  2. CARBOPLATIN [Suspect]
     Indication: GASTRIC ADENOMA
     Dosage: 410.00 MG, INTRAVENOUS
     Route: 042
     Dates: start: 20070606
  3. EPIRUBICIN [Suspect]
     Indication: GASTRIC ADENOMA
     Dosage: 66.00 MG, INTRAVENOUS
     Route: 042
     Dates: start: 20070606
  4. CAPECITABINE9CAPECITABINE) TABLET [Suspect]
     Indication: GASTRIC ADENOMA
     Dosage: 1600.00 MG, ORAL
     Route: 042
     Dates: start: 20070606
  5. ZOLPIDEM TARTRATE [Concomitant]
  6. CLOBETASOL PROPIONATE [Concomitant]
  7. LOPERAMIDE [Concomitant]
  8. ACETAMINOPHEN [Concomitant]
  9. ONDANSETRON HCL [Concomitant]
  10. SODIUM PICOSULFATE (SODIUM PICOSULFATE) [Concomitant]
  11. DOMPERIDONE (DOMPERIDONE) [Concomitant]

REACTIONS (4)
  - LOCAL SWELLING [None]
  - MALIGNANT NEOPLASM PROGRESSION [None]
  - METASTATIC NEOPLASM [None]
  - PYREXIA [None]
